FAERS Safety Report 8945988 (Version 11)
Quarter: 2013Q4

REPORT INFORMATION
  Report Type: Report from Study
  Country: US (occurrence: US)
  Receive Date: 20121205
  Receipt Date: 20131223
  Transmission Date: 20140711
  Serious: Yes (Hospitalization, Other)
  Sender: FDA-Public Use
  Company Number: US-PFIZER INC-2012203704

PATIENT
  Age: 66 Year
  Sex: Female
  Weight: 79.4 kg

DRUGS (11)
  1. TOFACITINIB CITRATE [Suspect]
     Indication: PSORIASIS
     Dosage: 5 MG, 2X/DAY
     Route: 048
     Dates: start: 20120201, end: 20120809
  2. METOPROLOL [Concomitant]
     Indication: HYPERTENSION
     Dosage: 50 MG, 2X/DAY
     Route: 048
     Dates: start: 2006
  3. LIPITOR [Concomitant]
     Indication: HYPERCHOLESTEROLAEMIA
     Dosage: 20 MG, 1X/DAY
     Route: 048
     Dates: start: 2009
  4. GLIPIZIDE XL [Concomitant]
     Indication: DIABETES MELLITUS
     Dosage: 15 MG, 1X/DAY
     Route: 048
     Dates: start: 2007
  5. FUROSEMIDE [Concomitant]
     Indication: HYPERTENSION
     Dosage: 20 MG, 1X/DAY
     Route: 048
     Dates: start: 2006
  6. L-THYROXIN [Concomitant]
     Indication: HYPOTHYROIDISM
     Dosage: 0.1 MG, 1X/DAY
     Route: 048
     Dates: start: 1975
  7. DIOVAN [Concomitant]
     Indication: HYPERTENSION
     Dosage: 160 MG, 1X/DAY
     Route: 048
     Dates: start: 2006
  8. MOBIC [Concomitant]
     Indication: ARTHRALGIA
     Dosage: 15 MG, 1X/DAY
     Route: 048
     Dates: start: 2007
  9. EXCEDRIN (ASPIRIN/CAFFEINE/PARACETAMOL) [Concomitant]
     Indication: HEADACHE
     Dosage: 1 TAB AS NEEDED
     Route: 048
     Dates: start: 1969
  10. EXCEDRIN (ASPIRIN/CAFFEINE/PARACETAMOL) [Concomitant]
     Indication: BACK PAIN
  11. DERMA-SMOOTHE [Concomitant]
     Indication: PSORIASIS
     Dosage: 1 APP, QHS
     Route: 061
     Dates: start: 20120523

REACTIONS (3)
  - Diverticular perforation [Recovered/Resolved]
  - Diverticulitis [Recovered/Resolved]
  - Renal cell carcinoma [Recovered/Resolved]
